FAERS Safety Report 12193480 (Version 3)
Quarter: 2016Q3

REPORT INFORMATION
  Report Type: Report from Study
  Country: US (occurrence: US)
  Receive Date: 20160320
  Receipt Date: 20160720
  Transmission Date: 20161109
  Serious: Yes (Hospitalization, Other)
  Sender: FDA-Public Use
  Company Number: US-BIOGEN-2013BI041863

PATIENT
  Sex: Male

DRUGS (1)
  1. AVONEX [Suspect]
     Active Substance: INTERFERON BETA-1A
     Indication: MULTIPLE SCLEROSIS
     Route: 030
     Dates: start: 20110217

REACTIONS (10)
  - Quadriplegia [Unknown]
  - Cystitis [Unknown]
  - Mental status changes [Unknown]
  - Pneumothorax [Unknown]
  - Antibody test abnormal [Not Recovered/Not Resolved]
  - Nosocomial infection [Unknown]
  - Seizure [Unknown]
  - Neurogenic bladder [Unknown]
  - Decreased immune responsiveness [Not Recovered/Not Resolved]
  - Pneumonia [Unknown]

NARRATIVE: CASE EVENT DATE: 2013
